FAERS Safety Report 9621477 (Version 1)
Quarter: 2013Q4

REPORT INFORMATION
  Report Type: Spontaneous
  Country: US (occurrence: None)
  Receive Date: 20131011
  Receipt Date: 20131011
  Transmission Date: 20140711
  Serious: Yes (Other)
  Sender: FDA-Public Use
  Company Number: None

PATIENT
  Age: 59 Year
  Sex: Male
  Weight: 81.65 kg

DRUGS (1)
  1. LOSARTAN 50MG PACK [Suspect]
     Dosage: TAKE 1 TABLET DAILY

REACTIONS (2)
  - Blood pressure increased [None]
  - Product quality issue [None]
